FAERS Safety Report 9792753 (Version 2)
Quarter: 2019Q3

REPORT INFORMATION
  Report Type: Spontaneous
  Country: US (occurrence: US)
  Receive Date: 20140102
  Receipt Date: 20190827
  Transmission Date: 20191005
  Serious: No
  Sender: FDA-Public Use
  Company Number: US-SANOFI-AVENTIS-2013SA032787

PATIENT
  Age: 45 Year
  Sex: Female

DRUGS (3)
  1. AUBAGIO [Suspect]
     Active Substance: TERIFLUNOMIDE
     Indication: MULTIPLE SCLEROSIS
     Dosage: 14 MG,QD
     Route: 048
     Dates: start: 201301
  2. AUBAGIO [Suspect]
     Active Substance: TERIFLUNOMIDE
     Dosage: 7 MG, QOD
  3. AUBAGIO [Suspect]
     Active Substance: TERIFLUNOMIDE
     Dosage: 7 MG, QD, NIGHTLY

REACTIONS (5)
  - Vomiting [Unknown]
  - Weight decreased [Not Recovered/Not Resolved]
  - Nausea [Unknown]
  - Diarrhoea [Unknown]
  - Product use issue [Unknown]
